FAERS Safety Report 19604005 (Version 1)
Quarter: 2021Q3

REPORT INFORMATION
  Report Type: Spontaneous
  Country: FR (occurrence: FR)
  Receive Date: 20210724
  Receipt Date: 20210724
  Transmission Date: 20211014
  Serious: Yes (Other)
  Sender: FDA-Public Use
  Company Number: FR-LUPIN PHARMACEUTICALS INC.-2021-12738

PATIENT
  Age: 51 Year
  Sex: Female

DRUGS (2)
  1. CEFTRIAXONE. [Suspect]
     Active Substance: CEFTRIAXONE
     Indication: PRODUCT USED FOR UNKNOWN INDICATION
     Dosage: UNK
     Route: 065
  2. CEFOTAXIME [Suspect]
     Active Substance: CEFOTAXIME SODIUM
     Indication: SKIN TEST
     Dosage: UNK 2MG/ML DURING SKIN TEST
     Route: 065

REACTIONS (4)
  - Anaphylactic reaction [Unknown]
  - Rash [Unknown]
  - Pruritus [Unknown]
  - Malaise [Unknown]
